FAERS Safety Report 24443811 (Version 2)
Quarter: 2024Q4

REPORT INFORMATION
  Report Type: Spontaneous
  Country: ES (occurrence: ES)
  Receive Date: 20241016
  Receipt Date: 20241205
  Transmission Date: 20250115
  Serious: Yes (Death, Hospitalization, Other)
  Sender: AMGEN
  Company Number: ES-AMGEN-ESPSP2024202400

PATIENT
  Age: 70 Year
  Sex: Female

DRUGS (1)
  1. PROLIA [Suspect]
     Active Substance: DENOSUMAB
     Indication: Osteoporosis
     Dosage: UNK, Q6MO
     Route: 058
     Dates: start: 20240102

REACTIONS (8)
  - Cardio-respiratory arrest [Fatal]
  - Hip fracture [Unknown]
  - Injury [Unknown]
  - Diabetes mellitus [Unknown]
  - Fall [Unknown]
  - General physical health deterioration [Unknown]
  - Peripheral arterial occlusive disease [Unknown]
  - Hypertension [Unknown]

NARRATIVE: CASE EVENT DATE: 20240101
